FAERS Safety Report 17599236 (Version 2)
Quarter: 2020Q2

REPORT INFORMATION
  Report Type: Spontaneous
  Country: US (occurrence: US)
  Receive Date: 20200330
  Receipt Date: 20200408
  Transmission Date: 20200713
  Serious: Yes (Other)
  Sender: FDA-Public Use
  Company Number: US-NALPROPION PHARMACEUTICALS INC.-2020-009955

PATIENT
  Age: 72 Year
  Sex: Female

DRUGS (4)
  1. CONTRAVE [Suspect]
     Active Substance: BUPROPION HYDROCHLORIDE\NALTREXONE HYDROCHLORIDE
     Indication: WEIGHT CONTROL
     Dosage: ONE TABLET AM (FOR FIVE WEEKS)
     Route: 048
     Dates: start: 201812, end: 2019
  2. CONTRAVE [Suspect]
     Active Substance: BUPROPION HYDROCHLORIDE\NALTREXONE HYDROCHLORIDE
     Dosage: ONE TABLET AM, ONE TABLET PM (AT LEAST ANOTHER FOUR WEEKS)
     Route: 048
     Dates: start: 2019, end: 2019
  3. CONTRAVE [Suspect]
     Active Substance: BUPROPION HYDROCHLORIDE\NALTREXONE HYDROCHLORIDE
     Dosage: ONE TABLET AM, TWO TABLETS PM (STARTED AFTER SIX MONTHS AFTER STARTING CONTRAVE IN DEC-2018)
     Route: 048
     Dates: start: 2019, end: 2019
  4. CONTRAVE [Suspect]
     Active Substance: BUPROPION HYDROCHLORIDE\NALTREXONE HYDROCHLORIDE
     Dosage: TWO TABLETS AM, TWO TABLETS PM (STARTED: SIX MONTH AFTER STARTING CONTRAVE)
     Route: 048
     Dates: start: 2019, end: 20200326

REACTIONS (5)
  - Stress fracture [Unknown]
  - Fall [Unknown]
  - Contraindicated product administered [Unknown]
  - Nausea [Recovered/Resolved]
  - Hip fracture [Unknown]

NARRATIVE: CASE EVENT DATE: 20200324
